FAERS Safety Report 7282168-5 (Version None)
Quarter: 2011Q1

REPORT INFORMATION
  Report Type: 
  Country: None (occurrence: None)
  Receive Date: 20110209
  Receipt Date: 20110201
  Transmission Date: 20110831
  Serious: Yes (Other)
  Sender: FDA-Public Use
  Company Number: DE-AMGEN-DEUSP2011007031

PATIENT
  Age: 78 Year
  Sex: Female

DRUGS (8)
  1. ENBREL [Suspect]
     Indication: RHEUMATOID ARTHRITIS
     Dosage: 50 MG, WEEKLY
     Dates: start: 20100808
  2. FOLIC ACID [Concomitant]
     Dosage: UNK
  3. CALCIMAGON                         /00108001/ [Concomitant]
     Dosage: UNK
  4. ENBREL [Suspect]
     Indication: POLYARTHRITIS
  5. METEX                              /00113802/ [Concomitant]
     Dosage: 10 MG, UNK
  6. ENALAPRIL MALEATE [Concomitant]
     Dosage: 20 MG, UNK
  7. BISOPROLOL [Concomitant]
     Dosage: UNK
  8. DEKRISTOL [Concomitant]
     Dosage: 20000 EVERY TWO WEEKS

REACTIONS (4)
  - BURSITIS [None]
  - TINNITUS [None]
  - VOMITING [None]
  - NAUSEA [None]
